FAERS Safety Report 4513018-5 (Version None)
Quarter: 2004Q4

REPORT INFORMATION
  Report Type: 
  Country: None (occurrence: None)
  Receive Date: 20040928
  Receipt Date: 20040707
  Transmission Date: 20050328
  Serious: No
  Sender: FDA-Public Use
  Company Number: 04P-163-0266514-00

PATIENT
  Age: 32 Year
  Sex: Male
  Weight: 95.2554 kg

DRUGS (4)
  1. HUMIRA [Suspect]
     Indication: RHEUMATOID ARTHRITIS
     Dosage: 40 MG, 1 IN 2 WK, SUBCUTANEOUS
     Route: 058
     Dates: start: 20040501, end: 20040601
  2. AZATHIOPRINE [Concomitant]
  3. CIPROFLOXACIN [Concomitant]
  4. LANSOPRAZOLE [Concomitant]

REACTIONS (2)
  - BRONCHITIS [None]
  - WHEEZING [None]
